FAERS Safety Report 6674909-2 (Version None)
Quarter: 2010Q2

REPORT INFORMATION
  Report Type: 
  Country: None (occurrence: None)
  Receive Date: 20100409
  Receipt Date: 20100331
  Transmission Date: 20101027
  Serious: Yes (Other)
  Sender: FDA-Public Use
  Company Number: US-JNJFOC-20100400943

PATIENT
  Sex: Female
  Weight: 90.72 kg

DRUGS (3)
  1. ORTHO TRI-CYCLEN [Suspect]
     Indication: HORMONE THERAPY
     Route: 048
  2. ORTHO TRI-CYCLEN [Suspect]
     Route: 048
  3. REBIF [Concomitant]
     Indication: MULTIPLE SCLEROSIS
     Route: 058

REACTIONS (9)
  - ANXIETY [None]
  - DECREASED APPETITE [None]
  - DYSPNOEA [None]
  - HEADACHE [None]
  - MENORRHAGIA [None]
  - NAUSEA [None]
  - OFF LABEL USE [None]
  - PALPITATIONS [None]
  - POLYMENORRHOEA [None]
